FAERS Safety Report 7173388-9 (Version None)
Quarter: 2010Q4

REPORT INFORMATION
  Report Type: 
  Country: None (occurrence: None)
  Receive Date: 20101219
  Receipt Date: 20100226
  Transmission Date: 20110411
  Serious: No
  Sender: FDA-Public Use
  Company Number: US-AMGEN-KDL395631

PATIENT

DRUGS (2)
  1. ENBREL [Suspect]
     Indication: PSORIASIS
     Dosage: 50 MG, 2 TIMES/WK
     Dates: start: 20100128
  2. UNSPECIFIED CONTRACEPTIVE [Concomitant]
     Dosage: UNK UNK, UNK

REACTIONS (6)
  - DRUG ADMINISTRATION ERROR [None]
  - INJECTION SITE INDURATION [None]
  - INJECTION SITE PAIN [None]
  - INJECTION SITE REACTION [None]
  - INJECTION SITE WARMTH [None]
  - STAPHYLOCOCCAL INFECTION [None]
